FAERS Safety Report 15922604 (Version 1)
Quarter: 2019Q1

REPORT INFORMATION
  Report Type: Report from Study
  Country: None (occurrence: CA)
  Receive Date: 20190206
  Receipt Date: 20190206
  Transmission Date: 20190417
  Serious: Yes (Other)
  Sender: FDA-Public Use
  Company Number: CA-ABBVIE-19K-028-2641888-00

PATIENT
  Age: 35 Year
  Sex: Female

DRUGS (1)
  1. HUMIRA [Suspect]
     Active Substance: ADALIMUMAB
     Indication: COLITIS ULCERATIVE
     Route: 058
     Dates: start: 20181019

REACTIONS (3)
  - Post procedural haemorrhage [Unknown]
  - Large intestine polyp [Unknown]
  - Colitis [Not Recovered/Not Resolved]

NARRATIVE: CASE EVENT DATE: 201901
